FAERS Safety Report 7225458-4 (Version None)
Quarter: 2011Q1

REPORT INFORMATION
  Report Type: 
  Country: None (occurrence: None)
  Receive Date: 20110113
  Receipt Date: 20101111
  Transmission Date: 20110831
  Serious: Yes (Hospitalization)
  Sender: FDA-Public Use
  Company Number: US-PFIZER INC-2010156031

PATIENT
  Sex: Female

DRUGS (8)
  1. LISINOPRIL [Suspect]
  2. NEVANAC [Suspect]
  3. ZETIA [Suspect]
  4. ATENOLOL [Suspect]
  5. ASPIRIN [Suspect]
  6. GLUCOPHAGE [Suspect]
  7. RANIBIZUMAB [Suspect]
     Indication: MACULAR DEGENERATION
     Dosage: UNK
     Route: 031
     Dates: start: 20091020
  8. CARDIZEM [Suspect]

REACTIONS (2)
  - ACCIDENTAL OVERDOSE [None]
  - DIZZINESS [None]
